FAERS Safety Report 4421531-4 (Version None)
Quarter: 2004Q3

REPORT INFORMATION
  Report Type: 
  Country: None (occurrence: None)
  Receive Date: 20040804
  Receipt Date: 20040722
  Transmission Date: 20050211
  Serious: Yes (Hospitalization)
  Sender: FDA-Public Use
  Company Number: STA-AE-04-MTX-306

PATIENT
  Age: 63 Year
  Sex: Female

DRUGS (7)
  1. METHOTREXATE [Suspect]
     Dosage: 7.5 MG 1 X PER 1 WK, ORAL
     Route: 048
     Dates: start: 20030916, end: 20040513
  2. ENBREL [Suspect]
     Indication: RHEUMATOID ARTHRITIS
     Dosage: 25 MG 2 X PER 1 WK, SC
     Route: 058
     Dates: start: 20030201
  3. FOSAMAX [Concomitant]
  4. CALCIUM          (CALCIUM) [Concomitant]
  5. HYDROCHLOROTHIAZIDE [Concomitant]
  6. VITAMIN D [Concomitant]
  7. ETODOLAC [Concomitant]

REACTIONS (12)
  - ANAEMIA [None]
  - BONE MARROW DEPRESSION [None]
  - COMPUTERISED TOMOGRAM ABNORMAL [None]
  - FOLATE DEFICIENCY [None]
  - INFECTION [None]
  - LYMPHADENOPATHY [None]
  - LYMPHOMA [None]
  - NECROSIS [None]
  - NEOPLASM [None]
  - PAROTID GLAND ENLARGEMENT [None]
  - THYROID DISORDER [None]
  - TONSILLAR HYPERTROPHY [None]
